FAERS Safety Report 17442652 (Version 1)
Quarter: 2020Q1

REPORT INFORMATION
  Report Type: Spontaneous
  Country: US (occurrence: US)
  Receive Date: 20200220
  Receipt Date: 20200220
  Transmission Date: 20200409
  Serious: No
  Sender: FDA-Public Use
  Company Number: NVSC2020US047650

PATIENT
  Age: 21 Year
  Sex: Male

DRUGS (1)
  1. HALOPERIDOL. [Suspect]
     Active Substance: HALOPERIDOL
     Indication: PSYCHOMOTOR HYPERACTIVITY
     Dosage: UNK
     Route: 065

REACTIONS (1)
  - Drug ineffective [Unknown]
